FAERS Safety Report 7251715-1 (Version None)
Quarter: 2011Q1

REPORT INFORMATION
  Report Type: 
  Country: None (occurrence: None)
  Receive Date: 20110128
  Receipt Date: 20110117
  Transmission Date: 20110831
  Serious: Yes (Hospitalization)
  Sender: FDA-Public Use
  Company Number: NL-GENENTECH-312680

PATIENT
  Sex: Female
  Weight: 86 kg

DRUGS (21)
  1. RITUXIMAB [Suspect]
     Indication: DIFFUSE LARGE B-CELL LYMPHOMA
     Dosage: 750 MG, Q2W
     Route: 042
     Dates: start: 20100510
  2. CYCLOPHOSPHAMIDE [Suspect]
     Indication: DIFFUSE LARGE B-CELL LYMPHOMA
     Dosage: 1500 MG, Q2W
     Route: 042
     Dates: start: 20100510
  3. CYCLOPHOSPHAMIDE [Suspect]
     Dosage: 1500 MG, Q2W
     Route: 042
     Dates: start: 20100329
  4. VINCRISTINE [Suspect]
     Dosage: 2 MG, Q2W
     Route: 042
     Dates: start: 20100329
  5. PREDNISONE [Suspect]
     Indication: DIFFUSE LARGE B-CELL LYMPHOMA
     Dosage: 100 MG, UNK
     Route: 042
     Dates: start: 20100510
  6. ACETYLSALICYLIC ACID SRT [Concomitant]
     Indication: TRANSIENT ISCHAEMIC ATTACK
     Dosage: UNK
     Route: 048
     Dates: start: 20080101
  7. DOXORUBICIN HCL [Suspect]
     Indication: DIFFUSE LARGE B-CELL LYMPHOMA
     Dosage: 100 MG, Q2W
     Route: 042
     Dates: start: 20100510
  8. DOXORUBICIN HCL [Suspect]
     Dosage: 100 MG, Q2W
     Route: 042
     Dates: start: 20100329
  9. COTRIM [Concomitant]
     Indication: PROPHYLAXIS
     Dosage: 960 MG, UNK
     Route: 048
     Dates: start: 20100315
  10. PRIMPERAN TAB [Concomitant]
     Indication: NAUSEA
     Dosage: UNK
     Route: 048
     Dates: start: 20100315
  11. FLUCONAZOLE [Concomitant]
     Indication: CANDIDIASIS
     Dosage: UNK
     Route: 048
     Dates: start: 20100315
  12. VINCRISTINE [Suspect]
     Indication: DIFFUSE LARGE B-CELL LYMPHOMA
     Dosage: 2 MG, Q2W
     Route: 042
     Dates: start: 20100510
  13. PREDNISONE [Suspect]
     Dosage: 100 MG, UNK
     Route: 042
     Dates: start: 20100329
  14. G-CSF [Suspect]
     Indication: DIFFUSE LARGE B-CELL LYMPHOMA
     Dosage: 300 MG, UNK
     Route: 058
     Dates: start: 20100511
  15. KYTRIL [Concomitant]
     Indication: PRODUCT USED FOR UNKNOWN INDICATION
     Dosage: UNK
     Route: 048
     Dates: start: 20100315
  16. RITUXIMAB [Suspect]
     Dosage: 750 MG, Q2W
     Route: 042
     Dates: start: 20100329
  17. VALACICLOVIR [Concomitant]
     Indication: PRODUCT USED FOR UNKNOWN INDICATION
     Dosage: UNK
     Route: 048
     Dates: start: 20100315
  18. PANTOZOL [Concomitant]
     Indication: NAUSEA
     Dosage: UNK
     Route: 048
     Dates: start: 20100315
  19. MOVICOLON [Concomitant]
     Indication: PROPHYLAXIS
     Dosage: UNK
     Route: 048
     Dates: start: 20100319
  20. G-CSF [Suspect]
     Dosage: 300 MG, UNK
     Route: 058
     Dates: start: 20100330
  21. METOPROLOL [Concomitant]
     Indication: HYPERTENSION
     Dosage: UNK
     Route: 048
     Dates: start: 20080101

REACTIONS (1)
  - PULMONARY EMBOLISM [None]
